FAERS Safety Report 5534865-7 (Version None)
Quarter: 2007Q4

REPORT INFORMATION
  Report Type: 
  Country: None (occurrence: None)
  Receive Date: 20071205
  Receipt Date: 20071204
  Transmission Date: 20080405
  Serious: No
  Sender: FDA-Public Use
  Company Number: US-BOEHRINGER INGELHEIM PHARMACEUTICALS, INC.-2007-BP-23050BP

PATIENT
  Age: 52 Year
  Sex: Male

DRUGS (5)
  1. SPIRIVA [Suspect]
     Indication: CHRONIC OBSTRUCTIVE PULMONARY DISEASE
     Route: 055
     Dates: start: 20071013
  2. ACTOS [Concomitant]
  3. DICLOFENAC [Concomitant]
  4. CYCLOBENZAPRINE HCL [Concomitant]
  5. METFORMIN HCL [Concomitant]

REACTIONS (4)
  - ABDOMINAL PAIN LOWER [None]
  - CHILLS [None]
  - ERECTION INCREASED [None]
  - POLLAKIURIA [None]
